FAERS Safety Report 7829807-5 (Version None)
Quarter: 2011Q4

REPORT INFORMATION
  Report Type: 
  Country: None (occurrence: None)
  Receive Date: 20111021
  Receipt Date: 20111012
  Transmission Date: 20120403
  Serious: Yes (Hospitalization, Other)
  Sender: FDA-Public Use
  Company Number: IL-JNJFOC-20111007790

PATIENT
  Sex: Male

DRUGS (7)
  1. ALL OTHER THERAPEUTIC PRODUCT [Concomitant]
     Route: 065
  2. DEKINET [Concomitant]
     Route: 065
  3. INVEGA [Concomitant]
     Route: 048
     Dates: start: 20110909
  4. CLOPIXOL DEPOT [Concomitant]
     Route: 065
  5. HALDOL [Suspect]
     Dosage: 5 MG (2.5 ML) IN MORNING AND 10 MG (5 ML) IN EVENING
     Route: 065
     Dates: start: 20111011
  6. HALDOL [Suspect]
     Indication: SCHIZOPHRENIA
     Dosage: 5 MG (2.5 ML) IN MORNING AND 10 MG (5 ML) IN EVENING
     Route: 065
     Dates: start: 20110707
  7. PROPRANOLOL [Concomitant]
     Route: 065

REACTIONS (8)
  - CONFUSIONAL STATE [None]
  - TACHYCARDIA [None]
  - MUSCLE RIGIDITY [None]
  - GAIT DISTURBANCE [None]
  - DRY MOUTH [None]
  - TREMOR [None]
  - DIZZINESS [None]
  - MYDRIASIS [None]
